FAERS Safety Report 4347920-4 (Version None)
Quarter: 2004Q2

REPORT INFORMATION
  Report Type: 
  Country: None (occurrence: None)
  Receive Date: 20040422
  Receipt Date: 20040414
  Transmission Date: 20050107
  Serious: No
  Sender: FDA-Public Use
  Company Number: 2004UW07504

PATIENT
  Age: 74 Year
  Sex: Male
  Weight: 77.1115 kg

DRUGS (2)
  1. RHINOCORT [Suspect]
     Dosage: 2 SPRAY EACH NOSTRIL ONCE DAILY
     Route: 045
     Dates: start: 20040301
  2. XALANTAN [Concomitant]

REACTIONS (1)
  - CONVULSION [None]
